FAERS Safety Report 4876124-1 (Version None)
Quarter: 2006Q1

REPORT INFORMATION
  Report Type: 
  Country: None (occurrence: None)
  Receive Date: 20060110
  Receipt Date: 20050105
  Transmission Date: 20060701
  Serious: No
  Sender: FDA-Public Use
  Company Number: US-GLAXOSMITHKLINE-A0539541A

PATIENT
  Sex: Female

DRUGS (1)
  1. ACLOVATE [Suspect]
     Route: 061
     Dates: start: 20041213

REACTIONS (2)
  - AGITATION [None]
  - DEPRESSION [None]
